FAERS Safety Report 9558150 (Version 1)
Quarter: 2013Q3

REPORT INFORMATION
  Report Type: Spontaneous
  Country: US (occurrence: US)
  Receive Date: 20130926
  Receipt Date: 20130926
  Transmission Date: 20140515
  Serious: No
  Sender: FDA-Public Use
  Company Number: US-BIOGENIDEC-2013BI041984

PATIENT
  Age: 54 Year
  Sex: Male

DRUGS (14)
  1. TECFIDERA [Suspect]
     Indication: PRODUCT USED FOR UNKNOWN INDICATION
     Route: 048
     Dates: start: 201304, end: 201304
  2. TECFIDERA [Suspect]
     Indication: PRODUCT USED FOR UNKNOWN INDICATION
     Route: 048
     Dates: start: 20130422, end: 201304
  3. OMEPRAZOLE [Concomitant]
  4. LIPITOR [Concomitant]
  5. NAPROSYN [Concomitant]
  6. LISINOPRIL [Concomitant]
  7. VITAMIN D [Concomitant]
  8. PROBIOTIC [Concomitant]
  9. LORATADINE [Concomitant]
  10. VICODIN [Concomitant]
  11. ACIDOPHILUS [Concomitant]
  12. PREDISONE [Concomitant]
  13. CITRACAL+D [Concomitant]
  14. FLEXERIL [Concomitant]

REACTIONS (3)
  - Nausea [Unknown]
  - Flushing [Unknown]
  - Gastrointestinal disorder [Not Recovered/Not Resolved]
